FAERS Safety Report 9191520 (Version 2)
Quarter: 2013Q2

REPORT INFORMATION
  Report Type: Spontaneous
  Country: US (occurrence: US)
  Receive Date: 20130326
  Receipt Date: 20130402
  Transmission Date: 20140414
  Serious: Yes (Other)
  Sender: FDA-Public Use
  Company Number: US-TEVA-392765USA

PATIENT
  Sex: Female

DRUGS (1)
  1. AMPHETAMINE W/DEXTROAMPHETAMINE [Suspect]
     Dosage: 90 MILLIGRAM DAILY;

REACTIONS (12)
  - General physical health deterioration [Unknown]
  - Activities of daily living impaired [Unknown]
  - Tremor [Unknown]
  - Nausea [Unknown]
  - Tachyphrenia [Unknown]
  - Incoherent [Unknown]
  - Headache [Unknown]
  - Fear [Unknown]
  - Frustration [Unknown]
  - Anxiety [Unknown]
  - Palpitations [Unknown]
  - Feeling abnormal [Unknown]
